FAERS Safety Report 8265498-X (Version None)
Quarter: 2012Q2

REPORT INFORMATION
  Report Type: 
  Country: None (occurrence: None)
  Receive Date: 20120406
  Receipt Date: 20120405
  Transmission Date: 20120825
  Serious: Yes (Death, Other)
  Sender: FDA-Public Use
  Company Number: BR-PFIZER INC-2012086468

PATIENT
  Age: 78 Year
  Sex: Female

DRUGS (8)
  1. LOSARTAN POTASSIUM AND HYDROCHLOROTHIAZIDE [Concomitant]
     Indication: HYPERTENSION
     Dosage: UNK
  2. ATENOLOL [Suspect]
     Indication: HYPERTENSION
     Dosage: UNK
  3. OLANZAPINE [Concomitant]
     Indication: MENTAL DISORDER
     Dosage: UNK
     Dates: start: 20020101
  4. FELDENE [Suspect]
     Indication: CYST
     Dosage: 40 MG, ALTERNATE DAY
     Route: 030
     Dates: start: 20120322, end: 20120330
  5. METFORMIN [Concomitant]
     Indication: DIABETES MELLITUS
     Dosage: UNK
     Dates: start: 20100101
  6. ULTRACET [Concomitant]
     Indication: CYST
     Dosage: 1 DF, 2X/DAY
     Dates: start: 20120322
  7. INSULIN [Concomitant]
     Indication: DIABETES MELLITUS
     Dosage: UNK
     Dates: start: 20100101
  8. OMEPRAZOLE [Concomitant]
     Indication: HYPERCHLORHYDRIA
     Dosage: UNK
     Dates: start: 20020101

REACTIONS (6)
  - ANAEMIA [None]
  - HAEMATOCHEZIA [None]
  - GASTRIC HAEMORRHAGE [None]
  - SHOCK HAEMORRHAGIC [None]
  - GASTRIC VARICES HAEMORRHAGE [None]
  - HAEMATEMESIS [None]
